FAERS Safety Report 4639535-5 (Version None)
Quarter: 2005Q2

REPORT INFORMATION
  Report Type: 
  Country: None (occurrence: None)
  Receive Date: 20050419
  Receipt Date: 20050406
  Transmission Date: 20051028
  Serious: Yes (Hospitalization)
  Sender: FDA-Public Use
  Company Number: US014974

PATIENT
  Age: 15 Year
  Sex: Male
  Weight: 74.8435 kg

DRUGS (1)
  1. GABITRIL [Suspect]
     Dosage: 36 MG ONCE ORAL
     Route: 048
     Dates: start: 20050306, end: 20050306

REACTIONS (12)
  - AGGRESSION [None]
  - DELIRIUM [None]
  - DEPRESSED LEVEL OF CONSCIOUSNESS [None]
  - DRUG SCREEN POSITIVE [None]
  - DYSSTASIA [None]
  - MUSCLE TWITCHING [None]
  - MYDRIASIS [None]
  - OVERDOSE [None]
  - PERIPHERAL COLDNESS [None]
  - SELF-MEDICATION [None]
  - STARING [None]
  - TREMOR [None]
